FAERS Safety Report 7866305-7 (Version None)
Quarter: 2011Q4

REPORT INFORMATION
  Report Type: 
  Country: None (occurrence: None)
  Receive Date: 20111028
  Receipt Date: 20110519
  Transmission Date: 20120403
  Serious: No
  Sender: FDA-Public Use
  Company Number: US-GLAXOSMITHKLINE-A0929513A

PATIENT
  Age: 78 Year
  Sex: Female

DRUGS (2)
  1. UNSPECIFIED MEDICATION [Concomitant]
     Indication: HYPERCHLORHYDRIA
     Route: 048
  2. ADVAIR DISKUS 100/50 [Suspect]
     Indication: WHEEZING
     Dosage: 1PUFF AT NIGHT
     Route: 055

REACTIONS (3)
  - NERVOUSNESS [None]
  - PRODUCT QUALITY ISSUE [None]
  - EMOTIONAL DISORDER [None]
